FAERS Safety Report 9285733 (Version 1)
Quarter: 2013Q2

REPORT INFORMATION
  Report Type: Spontaneous
  Country: GB (occurrence: GB)
  Receive Date: 20130513
  Receipt Date: 20130513
  Transmission Date: 20140414
  Serious: Yes (Other)
  Sender: FDA-Public Use
  Company Number: GB-009507513-1305GBR001949

PATIENT
  Age: 20 Year
  Sex: Female

DRUGS (2)
  1. NEXPLANON [Suspect]
     Indication: CONTRACEPTION
     Dosage: TOTAL DAILY DOSE: 68 MG
     Route: 059
  2. NEXPLANON [Suspect]
     Dosage: TOTAL DAILY DOSE: 68 MG
     Route: 059

REACTIONS (2)
  - Device difficult to use [Recovered/Resolved]
  - Needle issue [Unknown]
